FAERS Safety Report 6360877-X (Version None)
Quarter: 2009Q3

REPORT INFORMATION
  Report Type: 
  Country: None (occurrence: None)
  Receive Date: 20090915
  Receipt Date: 20090915
  Transmission Date: 20100115
  Serious: Yes (Hospitalization)
  Sender: FDA-Public Use
  Company Number: None

PATIENT
  Sex: Male
  Weight: 86.3 kg

DRUGS (2)
  1. MELPHALAN [Suspect]
     Indication: AMYLOIDOSIS
     Dosage: 10MG DAILY DAYS 1-7
     Dates: start: 20090706
  2. DEXAMETHASONE [Suspect]
     Indication: AMYLOIDOSIS
     Dosage: 40 MG ON DAYS 1-4 AND DAYS 22-25
     Dates: start: 20090706

REACTIONS (2)
  - PYREXIA [None]
  - RENAL FAILURE [None]
